FAERS Safety Report 9510052 (Version 1)
Quarter: 2013Q3

REPORT INFORMATION
  Report Type: Spontaneous
  Country: US (occurrence: US)
  Receive Date: 20130909
  Receipt Date: 20130909
  Transmission Date: 20140515
  Serious: No
  Sender: FDA-Public Use
  Company Number: US-BRISTOL-MYERS SQUIBB COMPANY-17137688

PATIENT
  Sex: Male

DRUGS (7)
  1. ABILIFY [Suspect]
     Route: 065
     Dates: start: 2010, end: 2012
  2. DEPAKOTE ER [Suspect]
     Indication: OPPOSITIONAL DEFIANT DISORDER
     Route: 065
     Dates: start: 2006, end: 2007
  3. DEPAKOTE ER [Suspect]
     Indication: ATTENTION DEFICIT/HYPERACTIVITY DISORDER
     Route: 065
     Dates: start: 2006, end: 2007
  4. ADDERALL [Suspect]
     Dates: start: 2006, end: 2007
  5. FOCALIN [Suspect]
     Dates: start: 2007, end: 201206
  6. STRATTERA [Suspect]
     Dates: start: 2006, end: 2007
  7. RISPERDAL [Suspect]
     Dates: start: 2006, end: 2007

REACTIONS (2)
  - Off label use [Unknown]
  - Amnesia [Unknown]
